FAERS Safety Report 7087829-9 (Version None)
Quarter: 2010Q4

REPORT INFORMATION
  Report Type: 
  Country: None (occurrence: None)
  Receive Date: 20101108
  Receipt Date: 20101102
  Transmission Date: 20110411
  Serious: Yes (Life-Threatening, Hospitalization)
  Sender: FDA-Public Use
  Company Number: DE-CELGENEUS-062-C5013-10070475

PATIENT
  Age: 56 Year
  Sex: Male

DRUGS (8)
  1. CC-5013 [Suspect]
     Route: 048
     Dates: start: 20100706, end: 20100707
  2. CC-5013 [Suspect]
     Route: 048
     Dates: start: 20100708, end: 20100709
  3. ASPIRIN [Concomitant]
     Indication: THROMBOSIS PROPHYLAXIS
     Route: 048
     Dates: start: 20100705, end: 20100709
  4. ALLOPURINOL [Concomitant]
     Indication: PROPHYLAXIS
     Route: 048
     Dates: start: 20100703
  5. PANTOPRAZOLE SODIUM [Concomitant]
     Indication: GASTRITIS PROPHYLAXIS
     Route: 048
     Dates: start: 20100705, end: 20100709
  6. MCP [Concomitant]
     Route: 065
     Dates: start: 20100707, end: 20100709
  7. SODIUM CHLORIDE [Concomitant]
     Route: 065
     Dates: start: 20100707, end: 20100710
  8. HEPARIN [Concomitant]
     Route: 065
     Dates: start: 20100707

REACTIONS (3)
  - ARRHYTHMIA [None]
  - COMPLEX PARTIAL SEIZURES [None]
  - SYNCOPE [None]
